FAERS Safety Report 7346361-5 (Version None)
Quarter: 2011Q1

REPORT INFORMATION
  Report Type: 
  Country: None (occurrence: None)
  Receive Date: 20110301
  Receipt Date: 20110215
  Transmission Date: 20110831
  Serious: Yes (Hospitalization)
  Sender: FDA-Public Use
  Company Number: 2011MA000978

PATIENT
  Age: 76 Year
  Sex: Female

DRUGS (6)
  1. NIFEDIPINE [Concomitant]
  2. SULPIRIDE [Concomitant]
  3. ETIZOLAM [Concomitant]
  4. ZOPLICLONE [Concomitant]
  5. SERTRALINE HYDROCHLORIDE [Suspect]
     Indication: DEPRESSION
     Dosage: 25 MG; QD; PO
     Route: 048
  6. ALPRAZOLAM [Concomitant]

REACTIONS (3)
  - SEROTONIN SYNDROME [None]
  - FALL [None]
  - CONTUSION [None]
